FAERS Safety Report 14083036 (Version 2)
Quarter: 2017Q4

REPORT INFORMATION
  Report Type: Spontaneous
  Country: JP (occurrence: JP)
  Receive Date: 20171013
  Receipt Date: 20171027
  Transmission Date: 20180321
  Serious: Yes (Other)
  Sender: FDA-Public Use
  Company Number: JP-AMGEN-JPNSP2017155796

PATIENT
  Age: 92 Year
  Sex: Female

DRUGS (1)
  1. PRALIA [Suspect]
     Active Substance: DENOSUMAB
     Indication: OSTEOPOROSIS
     Dosage: 60 MG, Q6MO
     Route: 023
     Dates: start: 20130803

REACTIONS (2)
  - Humerus fracture [Recovered/Resolved]
  - Eye injury [Unknown]

NARRATIVE: CASE EVENT DATE: 20170201
